FAERS Safety Report 6051753-0 (Version None)
Quarter: 2009Q1

REPORT INFORMATION
  Report Type: 
  Country: None (occurrence: None)
  Receive Date: 20090121
  Receipt Date: 20090121
  Transmission Date: 20090719
  Serious: No
  Sender: FDA-Public Use
  Company Number: None

PATIENT
  Age: 51 Year
  Sex: Male
  Weight: 97.5234 kg

DRUGS (1)
  1. CIPROFLOXACIN [Suspect]
     Indication: PROSTATIC SPECIFIC ANTIGEN INCREASED
     Dosage: 500MG TWICE A DAY PO
     Route: 048
     Dates: end: 20090110

REACTIONS (4)
  - GAIT DISTURBANCE [None]
  - MUSCLE STRAIN [None]
  - MYALGIA [None]
  - PAIN IN EXTREMITY [None]
